FAERS Safety Report 9580546 (Version 1)
Quarter: 2013Q2

REPORT INFORMATION
  Report Type: Spontaneous
  Country: GB (occurrence: None)
  Receive Date: 20130514
  Receipt Date: 20130514
  Transmission Date: 20140414
  Serious: Yes (Life-Threatening, Hospitalization)
  Sender: FDA-Public Use
  Company Number: AUR-APL-2013-03732

PATIENT
  Age: 90 Year
  Sex: Female
  Weight: 44.2 kg

DRUGS (5)
  1. MIRTAZAPINE [Suspect]
     Indication: DEPRESSION
     Dosage: 30 MG, 1 IN 1 D), ORAL?
     Route: 048
     Dates: start: 20130301, end: 20130412
  2. AMLODIPINE (AMLODIPINE) [Concomitant]
  3. CITALOPRAM (CITALOPRAM) [Concomitant]
  4. DIGOXIN (DIGOXIN) [Concomitant]
  5. LEVOTHYROXINE (LEVOTHYROXINE) [Concomitant]

REACTIONS (2)
  - Neutropenia [None]
  - Neutropenic sepsis [None]
